FAERS Safety Report 8772909 (Version 1)
Quarter: 2012Q4

REPORT INFORMATION
  Report Type: 
  Country: GB (occurrence: GB)
  Receive Date: 20120907
  Receipt Date: 20120907
  Transmission Date: 20130627
  Serious: Yes (Hospitalization, Other)
  Sender: FDA-Public Use
  Company Number: GB-GENZYME-MOZO-1000745

PATIENT
  Age: 71 Year
  Sex: Male

DRUGS (6)
  1. MOZOBIL [Suspect]
     Indication: ACUTE MYELOID LEUKAEMIA
     Dosage: UNK
     Route: 065
     Dates: start: 20120420
  2. MOZOBIL [Suspect]
     Dosage: UNK
     Route: 065
     Dates: start: 20120815, end: 20120819
  3. EVOLTRA [Suspect]
     Indication: ACUTE MYELOID LEUKAEMIA
     Dosage: UNK
     Route: 065
     Dates: start: 20120420
  4. DAUNORUBICIN [Suspect]
     Indication: ACUTE MYELOID LEUKAEMIA
     Dosage: UNK
     Route: 065
     Dates: start: 20120420
  5. DAUNORUBICIN [Suspect]
     Dosage: UNK
     Route: 065
     Dates: start: 20120815, end: 20120817
  6. ARA-C [Suspect]
     Indication: ACUTE MYELOID LEUKAEMIA
     Dosage: UNK
     Route: 065
     Dates: start: 20120815, end: 20120820

REACTIONS (11)
  - Peritonsillar abscess [Not Recovered/Not Resolved]
  - White blood cell count decreased [Unknown]
  - Medication error [Unknown]
  - Chest pain [Unknown]
  - Chills [Unknown]
  - Anaemia [Unknown]
  - Neutropenia [Unknown]
  - Fatigue [Unknown]
  - Thrombocytopenia [Unknown]
  - Device related infection [Not Recovered/Not Resolved]
  - Pyrexia [Not Recovered/Not Resolved]
